FAERS Safety Report 4450446-0 (Version None)
Quarter: 2004Q3

REPORT INFORMATION
  Report Type: 
  Country: None (occurrence: None)
  Receive Date: 20040914
  Receipt Date: 20040830
  Transmission Date: 20050211
  Serious: Yes (Hospitalization, Other)
  Sender: FDA-Public Use
  Company Number: 2004-DE-04628PO

PATIENT
  Age: 64 Year
  Sex: Female

DRUGS (3)
  1. VIRAMUNE [Suspect]
     Indication: ACQUIRED IMMUNODEFICIENCY SYNDROME
     Dosage: 200 MG (200 MG,1 IN 1 D), PO
     Route: 048
     Dates: start: 20040528, end: 20040608
  2. COTRIMOXAZOL [Suspect]
     Indication: ACQUIRED IMMUNODEFICIENCY SYNDROME
     Dosage: PO
     Route: 048
     Dates: start: 20040513, end: 20040608
  3. LAMIVUDINE+ZIDOVUDINE (ZIDOVUDINE W/LAMIVUDINE) [Concomitant]

REACTIONS (8)
  - DRUG INTERACTION [None]
  - ERYTHEMA [None]
  - FACE OEDEMA [None]
  - INFLUENZA [None]
  - MALAISE [None]
  - MYALGIA [None]
  - NAUSEA [None]
  - OEDEMA PERIPHERAL [None]
